FAERS Safety Report 14398818 (Version 2)
Quarter: 2018Q1

REPORT INFORMATION
  Report Type: Report from Study
  Country: None (occurrence: LB)
  Receive Date: 20180117
  Receipt Date: 20180207
  Transmission Date: 20180509
  Serious: Yes (Hospitalization, Other)
  Sender: FDA-Public Use
  Company Number: LB-ABBVIE-18K-093-2225032-00

PATIENT
  Age: 26 Year
  Sex: Male
  Weight: 65 kg

DRUGS (4)
  1. CORTISONE [Concomitant]
     Active Substance: CORTISONE\HYDROCORTISONE
     Indication: PRODUCT USED FOR UNKNOWN INDICATION
  2. HUMIRA [Suspect]
     Active Substance: ADALIMUMAB
     Dosage: LOADING DOSE
     Route: 058
     Dates: start: 201706, end: 201706
  3. HUMIRA [Suspect]
     Active Substance: ADALIMUMAB
     Route: 058
     Dates: start: 201706, end: 201712
  4. HUMIRA [Suspect]
     Active Substance: ADALIMUMAB
     Indication: CROHN^S DISEASE
     Dosage: LOADING DOSE
     Route: 058
     Dates: start: 201705, end: 201705

REACTIONS (5)
  - Rectal haemorrhage [Recovered/Resolved]
  - Abscess intestinal [Recovered/Resolved]
  - Weight decreased [Unknown]
  - Anal fistula [Recovered/Resolved]
  - Nosocomial infection [Recovered/Resolved]

NARRATIVE: CASE EVENT DATE: 201712
